FAERS Safety Report 9459598 (Version 1)
Quarter: 2013Q3

REPORT INFORMATION
  Report Type: Spontaneous
  Country: BR (occurrence: BR)
  Receive Date: 20130815
  Receipt Date: 20130815
  Transmission Date: 20140515
  Serious: Yes (Other)
  Sender: FDA-Public Use
  Company Number: BR-BAYER-2013-095896

PATIENT
  Sex: Male

DRUGS (1)
  1. REGORAFENIB [Suspect]
     Indication: COLORECTAL CANCER
     Dosage: DAILY DOSE 160 MG
     Route: 048

REACTIONS (5)
  - Colorectal cancer [None]
  - Metastases to central nervous system [None]
  - Asthenia [None]
  - Fatigue [None]
  - Diarrhoea [None]
